FAERS Safety Report 7795485-7 (Version None)
Quarter: 2011Q4

REPORT INFORMATION
  Report Type: 
  Country: None (occurrence: None)
  Receive Date: 20111004
  Receipt Date: 20110926
  Transmission Date: 20120403
  Serious: Yes (Death)
  Sender: FDA-Public Use
  Company Number: JP-MERCK-1109USA03371

PATIENT
  Age: 87 Year
  Sex: Male

DRUGS (5)
  1. TRUSOPT [Suspect]
     Indication: OCULAR HYPERTENSION
     Dosage: DAILY DOSAGE INKNOWN
     Route: 047
     Dates: start: 20081217, end: 20100419
  2. TIMOPTIC [Suspect]
     Indication: GLAUCOMA
     Dosage: DAILY DOSAGE UNKNOWN
     Route: 047
     Dates: start: 20081210, end: 20100419
  3. TIMOPTIC [Suspect]
     Indication: HYPERTONIA
     Dosage: DAILY DOSAGE UNKNOWN
     Route: 047
     Dates: start: 20081210, end: 20100419
  4. TRUSOPT [Suspect]
     Indication: GLAUCOMA
     Dosage: DAILY DOSAGE INKNOWN
     Route: 047
     Dates: start: 20081217, end: 20100419
  5. TAPROS (TAFLUPROST) [Concomitant]
     Indication: OPEN ANGLE GLAUCOMA
     Dosage: BOTH EYES AND DAILY DOSAGE UNKNOWNS
     Route: 047
     Dates: start: 20090109, end: 20100419

REACTIONS (1)
  - OESOPHAGEAL CARCINOMA [None]
